FAERS Safety Report 19711885 (Version 2)
Quarter: 2021Q3

REPORT INFORMATION
  Report Type: Spontaneous
  Country: BR (occurrence: BR)
  Receive Date: 20210817
  Receipt Date: 20210930
  Transmission Date: 20211014
  Serious: Yes (Other)
  Sender: FDA-Public Use
  Company Number: BR-ABBVIE-21P-020-4042625-00

PATIENT
  Sex: Female
  Weight: 74 kg

DRUGS (5)
  1. RISEDROSS [Concomitant]
     Active Substance: RISEDRONATE SODIUM
     Indication: VITAMIN SUPPLEMENTATION
     Route: 048
  2. SYNTHROID [Suspect]
     Active Substance: LEVOTHYROXINE SODIUM
     Indication: THYROID MASS
     Dosage: DAILY DOSE: 175 MCG. USES ON WEEKENDS, IN MORNING, 30 MINUTES BEFORE FIRST MEAL
     Route: 048
  3. VITAMIN D [Concomitant]
     Active Substance: VITAMIN D NOS
     Indication: VITAMIN D
     Route: 048
  4. SYNTHROID [Suspect]
     Active Substance: LEVOTHYROXINE SODIUM
     Indication: THYROID STIMULATING HORMONE DEFICIENCY
     Dosage: DAILY DOSE: 200 MCG. USES ON WEEK DAYS, IN MORNING, 30 MINUTES BEFORE FIRST MEAL
     Route: 048
  5. CHLOROQUINE. [Concomitant]
     Active Substance: CHLOROQUINE
     Indication: ALOPECIA
     Dosage: USED DURING ONE YEAR AND HALF
     Route: 048

REACTIONS (6)
  - Thyroid cancer [Unknown]
  - Incorrect dose administered [Unknown]
  - Astigmatism [Not Recovered/Not Resolved]
  - Fluid retention [Recovered/Resolved]
  - Thyroid operation [Unknown]
  - Thyroid disorder [Unknown]

NARRATIVE: CASE EVENT DATE: 2019
